FAERS Safety Report 5394145-X (Version None)
Quarter: 2007Q3

REPORT INFORMATION
  Report Type: 
  Country: None (occurrence: None)
  Receive Date: 20070723
  Receipt Date: 20070717
  Transmission Date: 20080115
  Serious: Yes (Death, Other)
  Sender: FDA-Public Use
  Company Number: NL-ROCHE-507505

PATIENT
  Age: 43 Year
  Sex: Male

DRUGS (7)
  1. MYCOPHENOLATE MOFETIL [Suspect]
     Route: 065
  2. RABBIT ANTITHYMOCYTE GLOBULIN [Suspect]
     Dosage: IMMUNOSUPPRESSION INDUCTION
     Route: 065
  3. CYCLOSPORINE [Suspect]
     Dosage: ADMINISTERED TO REACH WHOLE BLOOD TROUGH LEVELS OF 400 UG/L TAPERED IN 3 WEEKS TO 150 UG/L.  STOPPE+
     Route: 065
  4. AZATHIOPRINE [Suspect]
     Route: 065
  5. PREDNISOLONE [Suspect]
     Route: 065
  6. METHYLPREDNISOLONE [Suspect]
     Route: 042
  7. ANTILYMPHOCYTE IMMUNOGLOBULIN (HORSE) [Suspect]
     Dosage: 2 COURSES
     Route: 065

REACTIONS (2)
  - BRONCHOPNEUMONIA [None]
  - PROGRESSIVE MULTIFOCAL LEUKOENCEPHALOPATHY [None]
